FAERS Safety Report 20141945 (Version 1)
Quarter: 2021Q4

REPORT INFORMATION
  Report Type: Report from Study
  Country: EG (occurrence: EG)
  Receive Date: 20211202
  Receipt Date: 20211202
  Transmission Date: 20220303
  Serious: Yes (Other)
  Sender: FDA-Public Use
  Company Number: EG-NOVARTISPH-NVSC2021EG271224

PATIENT
  Age: 76 Year
  Sex: Male

DRUGS (4)
  1. ENTRESTO [Suspect]
     Active Substance: SACUBITRIL\VALSARTAN
     Indication: Cardiac failure
     Dosage: 50 MG, BID
     Route: 048
     Dates: start: 20210418, end: 20210830
  2. RAMIPRIL [Concomitant]
     Active Substance: RAMIPRIL
     Indication: Cardiac failure
     Dosage: 0.5 DOSAGE FORM, QD (HALF TABLET OF 1.25 MG)
     Route: 048
     Dates: start: 20210901
  3. CARVEDILOL [Concomitant]
     Active Substance: CARVEDILOL
     Indication: Cardiac failure
     Dosage: 0.5 DOSAGE FORM, QD (HALF TABLET OF 6.25 MG)
     Route: 048
     Dates: start: 20210901
  4. EPLERENONE [Concomitant]
     Active Substance: EPLERENONE
     Indication: Cardiac failure
     Dosage: 0.5 DOSAGE FORM, QD (HALF TABLET OF 25 MG)
     Route: 048
     Dates: start: 20210901

REACTIONS (6)
  - Gait inability [Recovering/Resolving]
  - Mobility decreased [Recovering/Resolving]
  - Fatigue [Recovering/Resolving]
  - Hypotension [Recovering/Resolving]
  - Ejection fraction decreased [Not Recovered/Not Resolved]
  - Drug ineffective [Recovering/Resolving]

NARRATIVE: CASE EVENT DATE: 20210418
